FAERS Safety Report 16265918 (Version 1)
Quarter: 2019Q2

REPORT INFORMATION
  Report Type: Spontaneous
  Country: GB (occurrence: GB)
  Receive Date: 20190502
  Receipt Date: 20190502
  Transmission Date: 20190711
  Serious: Yes (Other)
  Sender: FDA-Public Use
  Company Number: PHHY2019GB100576

PATIENT
  Age: 79 Year
  Sex: Male

DRUGS (1)
  1. TEGRETOL [Suspect]
     Active Substance: CARBAMAZEPINE
     Indication: SEIZURE
     Dosage: 6 DF, QD (3 TABLET IN MORNING AND 3 TABLET IN EVENING)
     Route: 065

REACTIONS (2)
  - Eating disorder [Unknown]
  - Weight decreased [Unknown]
